FAERS Safety Report 19482353 (Version 1)
Quarter: 2021Q3

REPORT INFORMATION
  Report Type: Spontaneous
  Country: GB (occurrence: GB)
  Receive Date: 20210701
  Receipt Date: 20210701
  Transmission Date: 20211014
  Serious: Yes (Other)
  Sender: FDA-Public Use
  Company Number: GB-TEVA-2021-GB-1928683

PATIENT
  Age: 52 Year
  Sex: Female

DRUGS (2)
  1. PEMETREXED. [Suspect]
     Active Substance: PEMETREXED
     Indication: ADENOCARCINOMA
     Route: 065
     Dates: start: 201103, end: 201106
  2. CARBOPLATIN. [Suspect]
     Active Substance: CARBOPLATIN
     Indication: ADENOCARCINOMA
     Route: 065
     Dates: start: 201103, end: 201106

REACTIONS (3)
  - Pneumothorax [Unknown]
  - Pneumonia [Unknown]
  - Sepsis [Unknown]

NARRATIVE: CASE EVENT DATE: 2011
